FAERS Safety Report 15721981 (Version 2)
Quarter: 2019Q1

REPORT INFORMATION
  Report Type: Spontaneous
  Country: CH (occurrence: CH)
  Receive Date: 20181214
  Receipt Date: 20190109
  Transmission Date: 20190417
  Serious: Yes (Hospitalization)
  Sender: FDA-Public Use
  Company Number: CH-ROCHE-2183666

PATIENT
  Age: 74 Year
  Sex: Male
  Weight: 90 kg

DRUGS (11)
  1. ASPIRIN CARDIO [Concomitant]
     Active Substance: ASPIRIN
  2. CIPRALEX [Concomitant]
     Active Substance: ESCITALOPRAM OXALATE
  3. RELVAR ELLIPTA [Concomitant]
     Active Substance: FLUTICASONE FUROATE\VILANTEROL TRIFENATATE
  4. ERIVEDGE [Suspect]
     Active Substance: VISMODEGIB
     Indication: BASAL CELL CARCINOMA
     Route: 048
     Dates: start: 201805, end: 20180831
  5. LISINOPRIL. [Concomitant]
     Active Substance: LISINOPRIL
  6. MIRTAZAPIN [Concomitant]
     Active Substance: MIRTAZAPINE
  7. DILTIAZEM. [Concomitant]
     Active Substance: DILTIAZEM
  8. SIMVASTIN [Concomitant]
     Active Substance: SIMVASTATIN
  9. MARCOUMAR [Concomitant]
     Active Substance: PHENPROCOUMON
  10. SOLMUCOL [Concomitant]
     Active Substance: ACETYLCYSTEINE
  11. LEXOTANIL [Concomitant]
     Active Substance: BROMAZEPAM

REACTIONS (2)
  - Pyrexia [Recovered/Resolved]
  - Urinary tract infection [Recovering/Resolving]

NARRATIVE: CASE EVENT DATE: 20180825
